FAERS Safety Report 6095193-7 (Version None)
Quarter: 2009Q1

REPORT INFORMATION
  Report Type: 
  Country: None (occurrence: None)
  Receive Date: 20090227
  Receipt Date: 20080211
  Transmission Date: 20090719
  Serious: No
  Sender: FDA-Public Use
  Company Number: A0708696A

PATIENT
  Age: 20 Year
  Sex: Female

DRUGS (4)
  1. LAMICTAL [Suspect]
     Indication: BIPOLAR DISORDER
     Dosage: 100MG PER DAY
     Route: 048
  2. KLONOPIN [Concomitant]
  3. NEURONTIN [Concomitant]
  4. ADDERALL 10 [Concomitant]

REACTIONS (1)
  - AMNESIA [None]
